FAERS Safety Report 4298923-X (Version None)
Quarter: 2004Q1

REPORT INFORMATION
  Report Type: 
  Country: None (occurrence: None)
  Receive Date: 20040217
  Receipt Date: 20040209
  Transmission Date: 20041129
  Serious: Yes (Other)
  Sender: FDA-Public Use
  Company Number: FRWYE570109FEB04

PATIENT
  Age: 35 Year
  Sex: Male

DRUGS (2)
  1. EFFEXOR [Suspect]
     Indication: PAIN
     Dosage: 25 MG 1X PER 1 DAY ORAL
     Route: 048
     Dates: start: 20031006
  2. SUBUTEX [Concomitant]

REACTIONS (1)
  - MURDER [None]
